FAERS Safety Report 18454726 (Version 1)
Quarter: 2020Q4

REPORT INFORMATION
  Report Type: Spontaneous
  Country: DZ (occurrence: DZ)
  Receive Date: 20201102
  Receipt Date: 20201102
  Transmission Date: 20210114
  Serious: Yes (Death)
  Sender: FDA-Public Use
  Company Number: DZ-PERRIGO-20DZ015192

PATIENT
  Age: 20 Year
  Sex: Female

DRUGS (3)
  1. ACETAMINOPHEN. [Suspect]
     Active Substance: ACETAMINOPHEN
     Indication: INTENTIONAL OVERDOSE
     Dosage: UNKNOWN
     Route: 048
  2. ANTIINFLAMMATORY AGENTS, NON-STEROIDS [Suspect]
     Active Substance: UNSPECIFIED INGREDIENT
     Indication: INTENTIONAL OVERDOSE
     Dosage: UNK
     Route: 048
  3. HALOPERIDOL. [Suspect]
     Active Substance: HALOPERIDOL
     Indication: INTENTIONAL OVERDOSE
     Dosage: UNK
     Route: 048

REACTIONS (8)
  - Deafness [Fatal]
  - Dehydration [Fatal]
  - Vision blurred [Fatal]
  - Tachypnoea [Fatal]
  - Intentional overdose [Fatal]
  - Seizure [Fatal]
  - Agitation [Fatal]
  - Haemorrhage [Fatal]
